FAERS Safety Report 12882894 (Version 1)
Quarter: 2016Q4

REPORT INFORMATION
  Report Type: Spontaneous
  Country: US (occurrence: US)
  Receive Date: 20161025
  Receipt Date: 20161025
  Transmission Date: 20170207
  Serious: No
  Sender: FDA-Public Use
  Company Number: US-BAYER-2016-204293

PATIENT
  Sex: Male

DRUGS (3)
  1. CLARITIN [Suspect]
     Active Substance: LORATADINE
     Indication: RESPIRATORY TRACT INFECTION
     Dosage: 10 MG, UNK
  2. CLARITIN [Suspect]
     Active Substance: LORATADINE
     Indication: INCREASED VISCOSITY OF UPPER RESPIRATORY SECRETION
  3. CLARITIN [Suspect]
     Active Substance: LORATADINE
     Indication: BRONCHIAL SECRETION RETENTION

REACTIONS (1)
  - Product use issue [Unknown]
